FAERS Safety Report 9539415 (Version 1)
Quarter: 2013Q3

REPORT INFORMATION
  Report Type: Spontaneous
  Country: JP (occurrence: JP)
  Receive Date: 20130920
  Receipt Date: 20130920
  Transmission Date: 20140515
  Serious: Yes (Other)
  Sender: FDA-Public Use
  Company Number: JP-TAKEDA-2013TJP000733

PATIENT
  Age: 65 Year
  Sex: Male

DRUGS (1)
  1. LIOVEL COMBINATION TABLETS HD [Suspect]
     Route: 048
     Dates: start: 201205, end: 201210

REACTIONS (1)
  - Interstitial lung disease [Unknown]
